FAERS Safety Report 24223428 (Version 1)
Quarter: 2024Q3

REPORT INFORMATION
  Report Type: Spontaneous
  Country: CN (occurrence: CN)
  Receive Date: 20240819
  Receipt Date: 20240819
  Transmission Date: 20241016
  Serious: Yes (Death, Life-Threatening, Hospitalization, Other)
  Sender: SANOFI AVENTIS
  Company Number: CN-MLMSERVICE-20240805-PI152430-00117-1

PATIENT
  Age: 71 Year
  Sex: Female

DRUGS (4)
  1. DEXAMETHASONE [Suspect]
     Active Substance: DEXAMETHASONE
     Indication: COVID-19
     Dosage: UNK
  2. ENOXAPARIN SODIUM [Suspect]
     Active Substance: ENOXAPARIN SODIUM
     Indication: COVID-19
     Dosage: UNK
  3. MOXIFLOXACIN [Concomitant]
     Active Substance: MOXIFLOXACIN
     Indication: COVID-19
  4. MOLNUPIRAVIR [Concomitant]
     Active Substance: MOLNUPIRAVIR
     Indication: COVID-19

REACTIONS (10)
  - Splenic abscess [Fatal]
  - Splenomegaly [Fatal]
  - Vomiting [Fatal]
  - Somnolence [Fatal]
  - Abdominal distension [Fatal]
  - Pyrexia [Fatal]
  - Septic shock [Fatal]
  - Sepsis [Fatal]
  - Coma [Fatal]
  - Acute respiratory distress syndrome [Fatal]
